FAERS Safety Report 5448636-3 (Version None)
Quarter: 2007Q3

REPORT INFORMATION
  Report Type: 
  Country: None (occurrence: None)
  Receive Date: 20070911
  Receipt Date: 20070831
  Transmission Date: 20080115
  Serious: Yes (Other)
  Sender: FDA-Public Use
  Company Number: FR-SOLVAY-00207033942

PATIENT
  Age: 75 Year
  Sex: Female

DRUGS (11)
  1. COVERSYL [Suspect]
     Indication: HYPERTENSION
     Dosage: DAILY DOSE: 2 MILLIGRAM(S)
     Route: 048
  2. CALCIDOSE [Concomitant]
     Indication: ILL-DEFINED DISORDER
     Dosage: DAILY DOSE:  UNKNOWN
     Route: 048
  3. ZOMETA [Suspect]
     Indication: OSTEOPOROSIS
     Dosage: DAILY DOSE: 4 MILLIGRAM(S)
     Route: 042
     Dates: start: 20050101, end: 20070630
  4. POTASSIUM CHLORIDE [Concomitant]
     Indication: ILL-DEFINED DISORDER
     Dosage: DAILY DOSE:  UNKNOWN
     Route: 048
  5. KREDEX [Suspect]
     Indication: ILL-DEFINED DISORDER
     Dosage: DAILY DOSE: 12.5 MILLIGRAM(S)
     Route: 048
     Dates: start: 20051201
  6. TARDYFERON [Concomitant]
     Indication: ILL-DEFINED DISORDER
     Dosage: DAILY DOSE:  UNKNOWN
     Route: 048
  7. AROMASIN [Suspect]
     Indication: ILL-DEFINED DISORDER
     Dosage: DAILY DOSE: 25 MILLIGRAM(S)
     Route: 048
     Dates: start: 20060901
  8. LEVOTHYROX [Suspect]
     Indication: HYPOTHYROIDISM
     Dosage: DAILY DOSE: 100 MICROGRAM(S)
     Route: 048
     Dates: start: 19890101
  9. PLAVIX [Suspect]
     Indication: PERIPHERAL ARTERIAL OCCLUSIVE DISEASE
     Dosage: DAILY DOSE: 75 MILLIGRAM(S)
     Route: 048
     Dates: start: 20040101
  10. CORTANCYL [Suspect]
     Indication: RHEUMATOID ARTHRITIS
     Dosage: DAILY DOSE: 15 MILLIGRAM(S)
     Route: 048
     Dates: start: 19870101
  11. LYRICA [Suspect]
     Indication: ILL-DEFINED DISORDER
     Dosage: DAILY DOSE: 300 MILLIGRAM(S)
     Route: 048
     Dates: start: 20070301

REACTIONS (1)
  - OSTEONECROSIS [None]
